FAERS Safety Report 8373457-1 (Version None)
Quarter: 2012Q2

REPORT INFORMATION
  Report Type: 
  Country: None (occurrence: None)
  Receive Date: 20120521
  Receipt Date: 20120112
  Transmission Date: 20120825
  Serious: Yes (Other)
  Sender: FDA-Public Use
  Company Number: US-TEVA-317643USA

PATIENT
  Age: 63 Year
  Sex: Male

DRUGS (4)
  1. RITUXIMAB [Concomitant]
     Indication: LYMPHOMA
     Route: 042
     Dates: end: 20111101
  2. TREANDA [Suspect]
     Indication: LYMPHOMA
     Route: 042
     Dates: end: 20111101
  3. PEGFILGRASTIM [Concomitant]
     Indication: NEUTROPHIL COUNT DECREASED
     Route: 058
  4. FILGRASTIM [Concomitant]
     Indication: NEUTROPHIL COUNT DECREASED
     Route: 058

REACTIONS (1)
  - NEUTROPHIL COUNT DECREASED [None]
